FAERS Safety Report 14834235 (Version 2)
Quarter: 2018Q2

REPORT INFORMATION
  Report Type: Spontaneous
  Country: US (occurrence: US)
  Receive Date: 20180501
  Receipt Date: 20180511
  Transmission Date: 20180711
  Serious: Yes (Disabling, Other)
  Sender: FDA-Public Use
  Company Number: US-ABBVIE-18P-163-2335369-00

PATIENT
  Age: 5 Year
  Sex: Male

DRUGS (2)
  1. VALPROATE SODIUM. [Suspect]
     Active Substance: VALPROATE SODIUM
     Indication: IDIOPATHIC GENERALISED EPILEPSY
  2. VALPROATE SODIUM. [Suspect]
     Active Substance: VALPROATE SODIUM
     Indication: PARTIAL SEIZURES
     Route: 065

REACTIONS (17)
  - Dementia [Recovered/Resolved]
  - Neuropsychiatric symptoms [Recovered/Resolved]
  - Disturbance in attention [Recovered/Resolved]
  - Condition aggravated [Recovered/Resolved]
  - Nystagmus [Recovered/Resolved]
  - Somnolence [Recovered/Resolved]
  - Emotional disorder [Recovered/Resolved]
  - Drug level increased [Recovered/Resolved]
  - Cerebellar atrophy [Recovered/Resolved]
  - Ataxia [Recovered/Resolved]
  - Cerebral atrophy [Recovered/Resolved]
  - Tremor [Recovered/Resolved]
  - Hypokinesia [Recovered/Resolved]
  - Headache [Unknown]
  - Cognitive disorder [Recovered/Resolved]
  - Staring [Recovered/Resolved]
  - Alopecia [Unknown]
